FAERS Safety Report 4414836-4 (Version None)
Quarter: 2004Q3

REPORT INFORMATION
  Report Type: 
  Country: None (occurrence: None)
  Receive Date: 20040804
  Receipt Date: 20031117
  Transmission Date: 20050211
  Serious: Yes (Other)
  Sender: FDA-Public Use
  Company Number: US-BRISTOL-MYERS SQUIBB COMPANY-12437380

PATIENT
  Age: 56 Year
  Sex: Male
  Weight: 109 kg

DRUGS (11)
  1. GLUCOVANCE [Suspect]
     Indication: DIABETES MELLITUS NON-INSULIN-DEPENDENT
     Route: 048
  2. PREDNISONE [Suspect]
  3. PRAVACHOL [Concomitant]
  4. TRICOR [Concomitant]
  5. PRINIVIL [Concomitant]
  6. DOLOBID [Concomitant]
  7. KEFLEX [Concomitant]
  8. RELAFEN [Concomitant]
  9. LEVOXYL [Concomitant]
  10. ASPIRIN [Concomitant]
  11. RANITIDINE HCL [Concomitant]

REACTIONS (1)
  - BLOOD GLUCOSE INCREASED [None]
